FAERS Safety Report 24545040 (Version 1)
Quarter: 2024Q4

REPORT INFORMATION
  Report Type: Spontaneous
  Country: US (occurrence: None)
  Receive Date: 20241023
  Receipt Date: 20241023
  Transmission Date: 20250114
  Serious: Yes (Disabling)
  Sender: Public
  Company Number: None

PATIENT
  Age: 18 Year
  Sex: Female
  Weight: 117 kg

DRUGS (4)
  1. CLARAVIS [Suspect]
     Active Substance: ISOTRETINOIN
     Indication: Acne
     Dates: start: 20180201, end: 20180701
  2. NOVOLOG [Concomitant]
     Active Substance: INSULIN ASPART
  3. Dexcom G6 [Concomitant]
  4. METHYLPHENIDATE [Concomitant]
     Active Substance: METHYLPHENIDATE

REACTIONS (1)
  - Type 1 diabetes mellitus [None]

NARRATIVE: CASE EVENT DATE: 20181101
